FAERS Safety Report 8302239-1 (Version None)
Quarter: 2012Q2

REPORT INFORMATION
  Report Type: 
  Country: None (occurrence: None)
  Receive Date: 20120420
  Receipt Date: 20120419
  Transmission Date: 20120825
  Serious: Yes (Death)
  Sender: FDA-Public Use
  Company Number: JP-B.I. PHARMACEUTICALS,INC./RIDGEFIELD-2012-BP-07460NB

PATIENT
  Age: 64 Year
  Sex: Male
  Weight: 80 kg

DRUGS (11)
  1. PRADAXA [Suspect]
     Indication: THROMBOSIS PROPHYLAXIS
     Dosage: 220 MG
     Route: 048
     Dates: start: 20120315, end: 20120327
  2. CELEBREX [Concomitant]
     Dosage: 2 ANZ
     Route: 048
     Dates: start: 20120324, end: 20120330
  3. WARFARIN SODIUM [Suspect]
     Indication: THROMBOSIS PROPHYLAXIS
     Dosage: 2 MG
     Route: 048
     Dates: start: 20120302, end: 20120305
  4. WARFARIN SODIUM [Suspect]
     Dosage: 2 MG
     Route: 048
     Dates: start: 20120306, end: 20120314
  5. VASORALAN [Concomitant]
     Dosage: 80 MG
     Route: 048
     Dates: start: 20120208, end: 20120330
  6. ZOSYN [Concomitant]
     Dosage: 13.5 MG
     Route: 065
     Dates: start: 20120321, end: 20120331
  7. LENDORMIN D TABLETS [Concomitant]
     Dosage: 1 ANZ
     Route: 048
     Dates: start: 20120312, end: 20120322
  8. ALBUMINAR [Concomitant]
     Dosage: 100 ML
     Route: 065
     Dates: start: 20120324, end: 20120326
  9. MUCOSTA [Concomitant]
     Dosage: 2 ANZ
     Route: 048
     Dates: start: 20120324, end: 20120330
  10. NEOPHAGEN [Concomitant]
     Dosage: 3 ANZ
     Route: 065
     Dates: start: 20120304, end: 20120331
  11. NOVOLIN 70/30 [Concomitant]
     Dosage: 4 U
     Route: 065
     Dates: start: 20120324, end: 20120330

REACTIONS (3)
  - HAEMORRHAGE [None]
  - HAEMATURIA [None]
  - MOUTH HAEMORRHAGE [None]
